FAERS Safety Report 12400648 (Version 1)
Quarter: 2016Q2

REPORT INFORMATION
  Report Type: Spontaneous
  Country: US (occurrence: None)
  Receive Date: 20160524
  Receipt Date: 20160524
  Transmission Date: 20160815
  Serious: Yes (Other)
  Sender: FDA-Public Use
  Company Number: None

PATIENT
  Age: 52 Year
  Sex: Female
  Weight: 131.54 kg

DRUGS (2)
  1. DESVENLAFAXINE. [Suspect]
     Active Substance: DESVENLAFAXINE
     Indication: ANXIETY
     Dosage: 30 TABLET(S)  IN THE MORNING  TAKEN BY MOUTH
     Route: 048
     Dates: start: 20160301, end: 20160523
  2. DESVENLAFAXINE. [Suspect]
     Active Substance: DESVENLAFAXINE
     Indication: DEPRESSION
     Dosage: 30 TABLET(S)  IN THE MORNING  TAKEN BY MOUTH
     Route: 048
     Dates: start: 20160301, end: 20160523

REACTIONS (4)
  - Product substitution issue [None]
  - Therapeutic response changed [None]
  - Anxiety [None]
  - No therapeutic response [None]

NARRATIVE: CASE EVENT DATE: 20160523
